FAERS Safety Report 16047360 (Version 1)
Quarter: 2019Q2

REPORT INFORMATION
  Report Type: Spontaneous
  Country: CA (occurrence: CA)
  Receive Date: 20190307
  Receipt Date: 20190307
  Transmission Date: 20190711
  Serious: Yes (Disabling)
  Sender: FDA-Public Use
  Company Number: None

PATIENT
  Age: 58 Year
  Sex: Female
  Weight: 69.75 kg

DRUGS (1)
  1. CIPROFLOXACIN. [Suspect]
     Active Substance: CIPROFLOXACIN
     Indication: DIARRHOEA
     Dosage: ?          QUANTITY:1 TABLET(S);?
     Route: 048
     Dates: start: 20190217, end: 20190221

REACTIONS (5)
  - Pain in extremity [None]
  - Swelling [None]
  - Hypoaesthesia [None]
  - Tendonitis [None]
  - Asthenia [None]

NARRATIVE: CASE EVENT DATE: 20190219
